FAERS Safety Report 9491208 (Version 2)
Quarter: 2013Q1

REPORT INFORMATION
  Report Type: Not Available
  Country: US (occurrence: US)
  Receive Date: 20120619
  Receipt Date: 20120619
  Transmission Date: 20140127
  Serious: No
  Sender: FDA-Public Use
  Company Number: US-LUNDBECK-DKLU1077456

PATIENT
  Sex: Female
  Weight: 12.5 kg

DRUGS (2)
  1. SABRIL (FOR ORAL SOLUTION) [Suspect]
     Indication: INFANTILE SPASMS
  2. OTHER ANTICONVULSANT THERAPY [Concomitant]
     Indication: NUCLEAR MAGNETIC RESONANCE IMAGING ABNORMAL

REACTIONS (1)
  - Tooth discolouration [Not Recovered/Not Resolved]
